FAERS Safety Report 7949044-3 (Version None)
Quarter: 2011Q4

REPORT INFORMATION
  Report Type: 
  Country: None (occurrence: None)
  Receive Date: 20111130
  Receipt Date: 20111020
  Transmission Date: 20120403
  Serious: No
  Sender: FDA-Public Use
  Company Number: US-BRISTOL-MYERS SQUIBB COMPANY-16181133

PATIENT
  Age: 75 Year
  Sex: Male
  Weight: 89 kg

DRUGS (1)
  1. KOMBIGLYZE XR [Suspect]
     Indication: DIABETES MELLITUS
     Dosage: RESTARTED:10/OCT/2011, EXPIRATION FEB 2013,PRESCRIPTION #: 533217
     Dates: start: 20111007

REACTIONS (1)
  - DYSPEPSIA [None]
